FAERS Safety Report 19578591 (Version 2)
Quarter: 2021Q3

REPORT INFORMATION
  Report Type: Spontaneous
  Country: JP (occurrence: JP)
  Receive Date: 20210719
  Receipt Date: 20210805
  Transmission Date: 20211014
  Serious: Yes (Other)
  Sender: FDA-Public Use
  Company Number: JP-GLAXOSMITHKLINE-JP2021041024

PATIENT
  Age: 5 Decade
  Sex: Female

DRUGS (1)
  1. ZEJULA [Suspect]
     Active Substance: NIRAPARIB
     Indication: OVARIAN CANCER RECURRENT
     Dosage: 200 MG
     Route: 048
     Dates: start: 20210108, end: 20210702

REACTIONS (6)
  - Disease progression [Unknown]
  - Hypertension [Recovered/Resolved]
  - Fatigue [Unknown]
  - Constipation [Recovering/Resolving]
  - Ovarian cancer recurrent [Unknown]
  - Nausea [Recovered/Resolved]

NARRATIVE: CASE EVENT DATE: 20210118
